FAERS Safety Report 9517158 (Version 2)
Quarter: 2014Q2

REPORT INFORMATION
  Report Type: Spontaneous
  Country: JP (occurrence: JP)
  Receive Date: 20130911
  Receipt Date: 20140625
  Transmission Date: 20141212
  Serious: Yes (Other)
  Sender: FDA-Public Use
  Company Number: JP-PFIZER INC-2013254981

PATIENT
  Age: 56 Year
  Sex: Male

DRUGS (3)
  1. SUTENT [Suspect]
     Indication: RENAL CANCER
     Dosage: 37.5 MG, DAILY
     Dates: start: 201007
  2. TORISEL [Concomitant]
     Indication: RENAL CANCER
     Dosage: UNK
     Dates: start: 201108
  3. INTERFERON [Concomitant]
     Indication: RENAL CANCER
     Dosage: UNK
     Dates: start: 201010, end: 201106

REACTIONS (3)
  - Haemorrhagic diathesis [Unknown]
  - Hypertension [Unknown]
  - Decreased appetite [Unknown]
